FAERS Safety Report 4853262-0 (Version None)
Quarter: 2005Q4

REPORT INFORMATION
  Report Type: 
  Country: None (occurrence: None)
  Receive Date: 20051212
  Receipt Date: 20051129
  Transmission Date: 20060501
  Serious: Yes (Disabling, Other)
  Sender: FDA-Public Use
  Company Number: HQWYE385903NOV05

PATIENT
  Age: 75 Year
  Sex: Female

DRUGS (1)
  1. INDERAL LA [Suspect]
     Indication: PANIC ATTACK
     Dosage: 80 MG 1X PER 1 DAY; ORAL
     Route: 048

REACTIONS (6)
  - CHEST PAIN [None]
  - DRUG INEFFECTIVE [None]
  - DYSPNOEA [None]
  - HEADACHE [None]
  - INCORRECT DOSE ADMINISTERED [None]
  - PANIC ATTACK [None]
